FAERS Safety Report 7767354-X (Version None)
Quarter: 2011Q3

REPORT INFORMATION
  Report Type: 
  Country: None (occurrence: None)
  Receive Date: 20110919
  Receipt Date: 20110902
  Transmission Date: 20111222
  Serious: Yes (Other)
  Sender: FDA-Public Use
  Company Number: AUR-APL-2011-04910

PATIENT
  Age: 89 Year
  Sex: Female
  Weight: 68.0396 kg

DRUGS (10)
  1. PLAVIX [Concomitant]
  2. LIPITOR [Concomitant]
  3. CALCIUM CARBONATE [Concomitant]
  4. ZINC (ZINC) [Concomitant]
  5. ALENDRONATE SODIUM [Suspect]
     Indication: PRODUCT USED FOR UNKNOWN INDICATION
     Dosage: (70 MG), ORAL
     Route: 048
  6. SIMVASTATIN [Concomitant]
  7. ACTONEL [Concomitant]
  8. ASPIRIN [Concomitant]
  9. CENTRUM SILVER (CENTRUM SILVER) [Concomitant]
  10. FISH OIL (FISH OIL) [Concomitant]

REACTIONS (2)
  - MYALGIA [None]
  - PAIN IN EXTREMITY [None]
